FAERS Safety Report 24346913 (Version 2)
Quarter: 2024Q4

REPORT INFORMATION
  Report Type: Spontaneous
  Country: DK (occurrence: DK)
  Receive Date: 20240921
  Receipt Date: 20241001
  Transmission Date: 20250114
  Serious: Yes (Hospitalization, Disabling)
  Sender: ACCORD
  Company Number: DK-MLMSERVICE-20240903-PI182349-00218-2

PATIENT
  Sex: Female

DRUGS (1)
  1. METHOTREXATE [Suspect]
     Active Substance: METHOTREXATE
     Indication: Rheumatoid arthritis
     Route: 058

REACTIONS (7)
  - Foot fracture [Recovered/Resolved]
  - Stress fracture [Recovered/Resolved]
  - Osteoporosis [Recovered/Resolved]
  - Ankle fracture [Recovered/Resolved]
  - Tibia fracture [Recovered/Resolved]
  - Fibula fracture [Recovered/Resolved]
  - Wrist fracture [Recovered/Resolved]

NARRATIVE: CASE EVENT DATE: 20180101
